FAERS Safety Report 9462113 (Version 1)
Quarter: 2013Q3

REPORT INFORMATION
  Report Type: Spontaneous
  Country: US (occurrence: None)
  Receive Date: 20130815
  Receipt Date: 20130815
  Transmission Date: 20140515
  Serious: Yes (Hospitalization)
  Sender: FDA-Public Use
  Company Number: None

PATIENT
  Age: 87 Year
  Sex: Male
  Weight: 57.9 kg

DRUGS (3)
  1. LOVENOX [Suspect]
     Indication: HIP SURGERY
     Route: 058
  2. MVI [Concomitant]
  3. LEVOTHYROXINE [Concomitant]

REACTIONS (5)
  - Ischaemic stroke [None]
  - Hypovolaemic shock [None]
  - Renal failure acute [None]
  - Acute respiratory failure [None]
  - Unresponsive to stimuli [None]
